FAERS Safety Report 8153874-5 (Version None)
Quarter: 2012Q1

REPORT INFORMATION
  Report Type: 
  Country: None (occurrence: None)
  Receive Date: 20120221
  Receipt Date: 20120209
  Transmission Date: 20120608
  Serious: Yes (Hospitalization)
  Sender: FDA-Public Use
  Company Number: DE-ELI_LILLY_AND_COMPANY-DE201202003208

PATIENT
  Sex: Female

DRUGS (1)
  1. FORTEO [Suspect]
     Indication: OSTEOPOROSIS
     Dosage: UNK
     Dates: start: 20120131, end: 20120204

REACTIONS (5)
  - PALPITATIONS [None]
  - HEADACHE [None]
  - ERYTHEMA [None]
  - PAIN IN EXTREMITY [None]
  - DYSPNOEA [None]
